FAERS Safety Report 5569852-6 (Version None)
Quarter: 2007Q4

REPORT INFORMATION
  Report Type: 
  Country: None (occurrence: None)
  Receive Date: 20071220
  Receipt Date: 20070409
  Transmission Date: 20080405
  Serious: No
  Sender: FDA-Public Use
  Company Number: US-ABBOTT-07P-163-0363292-00

PATIENT
  Sex: Female
  Weight: 56.296 kg

DRUGS (2)
  1. OMNICEF [Suspect]
     Indication: SINUSITIS
     Route: 048
     Dates: start: 20060201, end: 20060201
  2. OMNICEF [Suspect]
     Route: 048
     Dates: start: 20061207, end: 20061217

REACTIONS (2)
  - EYE SWELLING [None]
  - URTICARIA [None]
